FAERS Safety Report 4519354-0 (Version None)
Quarter: 2004Q4

REPORT INFORMATION
  Report Type: 
  Country: None (occurrence: None)
  Receive Date: 20041202
  Receipt Date: 20041119
  Transmission Date: 20050328
  Serious: Yes (Hospitalization)
  Sender: FDA-Public Use
  Company Number: 2004097758

PATIENT
  Age: 50 Year
  Sex: Female
  Weight: 90.2658 kg

DRUGS (12)
  1. BEXTRA [Suspect]
     Indication: BACK PAIN
     Dosage: 10 MG (10 MG, 1 IN 1 D), ORAL
     Route: 048
     Dates: start: 20041007, end: 20041012
  2. DYAZIDE [Concomitant]
  3. CONJUGATED ESTROGENS [Concomitant]
  4. VENLAFAXINE HCL [Concomitant]
  5. GABAPENTIN [Concomitant]
  6. LANSOPRAZOLE [Concomitant]
  7. DESLORATADINE (DESLORATADINE) [Concomitant]
  8. ESCITALOPRAM (ESCITALOPRAM) [Concomitant]
  9. METFORMIM HYDROCHLORIDE (METFORMIN HYDROCHLORIDE) [Concomitant]
  10. METOCLOPRAMIDE [Concomitant]
  11. ZAFIRLUKAST (ZAFIRLUKAST) [Concomitant]
  12. ZOLPIDEM TARTRATE [Concomitant]

REACTIONS (7)
  - NON-CARDIOGENIC PULMONARY OEDEMA [None]
  - PRURITUS [None]
  - PYREXIA [None]
  - RASH ERYTHEMATOUS [None]
  - RASH GENERALISED [None]
  - RASH PAPULAR [None]
  - TACHYCARDIA [None]
